FAERS Safety Report 6158669-X (Version None)
Quarter: 2009Q2

REPORT INFORMATION
  Report Type: 
  Country: None (occurrence: None)
  Receive Date: 20090415
  Receipt Date: 20090331
  Transmission Date: 20091009
  Serious: Yes (Hospitalization, Congenital Anomaly)
  Sender: FDA-Public Use
  Company Number: JHP200900101

PATIENT

DRUGS (1)
  1. PITOCIN [Suspect]
     Indication: DRUG EXPOSURE DURING PREGNANCY
     Dosage: 2MU/MIN AND INCREASING BY 2MU/MIN EVERY 20 MIN. TRANSPLACENTAL
     Route: 064

REACTIONS (7)
  - APGAR SCORE LOW [None]
  - BRADYCARDIA NEONATAL [None]
  - CAESAREAN SECTION [None]
  - CONVULSION NEONATAL [None]
  - ENCEPHALOPATHY NEONATAL [None]
  - FOETAL ACIDOSIS [None]
  - MATERNAL DRUGS AFFECTING FOETUS [None]
